FAERS Safety Report 9579880 (Version 1)
Quarter: 2013Q3

REPORT INFORMATION
  Report Type: Spontaneous
  Country: US (occurrence: None)
  Receive Date: 20130930
  Receipt Date: 20130930
  Transmission Date: 20140515
  Serious: Yes (Other)
  Sender: FDA-Public Use
  Company Number: None

PATIENT
  Age: 30 Year
  Sex: Female
  Weight: 90 kg

DRUGS (9)
  1. OXYCODONE HYDROCHLORIDE [Suspect]
     Indication: BILIARY COLIC
     Dosage: 1-2 TABLETS, BOTTLE 1: 4-6 HOURS, BOTTLE 2: 6 HOURS
     Route: 048
     Dates: start: 20130904, end: 20130930
  2. OXYCODONE HYDROCHLORIDE [Suspect]
     Indication: RENAL COLIC
     Dosage: 1-2 TABLETS, BOTTLE 1: 4-6 HOURS, BOTTLE 2: 6 HOURS
     Route: 048
     Dates: start: 20130904, end: 20130930
  3. ZOFRAN ODT [Concomitant]
  4. OMNICEF [Concomitant]
  5. OXYCODONE [Concomitant]
  6. MONONESSA [Concomitant]
  7. COLACE [Concomitant]
  8. METAMUCIL [Concomitant]
  9. TYLENOL [Concomitant]

REACTIONS (4)
  - Inadequate analgesia [None]
  - Nausea [None]
  - Product quality issue [None]
  - Product quality issue [None]
